FAERS Safety Report 9804285 (Version 2)
Quarter: 2014Q1

REPORT INFORMATION
  Report Type: Spontaneous
  Country: PL (occurrence: PL)
  Receive Date: 20140108
  Receipt Date: 20140117
  Transmission Date: 20141002
  Serious: Yes (Life-Threatening, Hospitalization)
  Sender: FDA-Public Use
  Company Number: PL-PFIZER INC-2014004139

PATIENT
  Age: 17 Year
  Sex: Female
  Weight: 55 kg

DRUGS (3)
  1. AMLODIPINE BESILATE [Suspect]
     Dosage: 600 MG, UNK
  2. BISOPROLOL FUMARATE [Suspect]
     Dosage: 125 MG, SINGLE
  3. CAPTOPRIL [Suspect]
     Dosage: 875 MG, SINGLE

REACTIONS (6)
  - Suicide attempt [Unknown]
  - Intentional overdose [Unknown]
  - Multi-organ failure [Recovered/Resolved]
  - Shock [Recovered/Resolved]
  - Gastrointestinal haemorrhage [Recovered/Resolved]
  - Hyperglycaemia [Recovered/Resolved]
